FAERS Safety Report 22171075 (Version 1)
Quarter: 2023Q2

REPORT INFORMATION
  Report Type: Spontaneous
  Country: FR (occurrence: FR)
  Receive Date: 20230404
  Receipt Date: 20230404
  Transmission Date: 20230721
  Serious: Yes (Hospitalization, Other)
  Sender: FDA-Public Use
  Company Number: FR-EMA-DD-20190513-kakwani_d-124134

PATIENT
  Age: 44 Year
  Sex: Male

DRUGS (13)
  1. ACARBOSE [Suspect]
     Active Substance: ACARBOSE
     Indication: Unevaluable event
     Dosage: 3 DOSAGE FORM, ONCE A DAY
     Route: 048
  2. ACARBOSE [Suspect]
     Active Substance: ACARBOSE
     Dosage: 1 DOSAGE FORM, ONCE A DAY
     Route: 048
  3. ATORVASTATIN [Suspect]
     Active Substance: ATORVASTATIN
     Indication: Unevaluable event
     Dosage: UNK
     Route: 048
  4. ATORVASTATIN [Suspect]
     Active Substance: ATORVASTATIN
     Dosage: 1 DOSAGE FORM, ONCE A DAY
     Route: 048
  5. VALSARTAN [Suspect]
     Active Substance: VALSARTAN
     Indication: Hypertension
     Dosage: 1 DOSAGE FORM, ONCE A DAY (TAKE ONE TABLET ONCE A DAY FOR ALLERGY)
     Route: 065
  6. CELECOXIB [Suspect]
     Active Substance: CELECOXIB
     Indication: Unevaluable event
     Dosage: UNK
     Route: 048
  7. CELECOXIB [Suspect]
     Active Substance: CELECOXIB
     Dosage: 2 DOSAGE FORM, ONCE A DAY
     Route: 048
     Dates: start: 20030225, end: 20030225
  8. GLYBURIDE [Suspect]
     Active Substance: GLYBURIDE
     Indication: Type 2 diabetes mellitus
     Dosage: 3 DOSAGE FORM, ONCE A DAY
     Route: 048
  9. GLYBURIDE [Suspect]
     Active Substance: GLYBURIDE
     Dosage: UNK
     Route: 065
  10. HYDROCHLOROTHIAZIDE [Suspect]
     Active Substance: HYDROCHLOROTHIAZIDE
     Indication: Product used for unknown indication
     Dosage: 1 DOSAGE FORM, ONCE A DAY
     Route: 048
  11. HYDROCHLOROTHIAZIDE [Suspect]
     Active Substance: HYDROCHLOROTHIAZIDE
     Indication: Hypertension
     Dosage: UNK
     Route: 065
  12. FELODIPINE [Suspect]
     Active Substance: FELODIPINE
     Indication: Unevaluable event
     Dosage: 5 MILLIGRAM, ONCE A DAY
     Route: 048
  13. NITROGLYCERIN [Concomitant]
     Active Substance: NITROGLYCERIN
     Indication: Chest pain
     Dosage: UNK UNK, QD
     Route: 048
     Dates: start: 20030225, end: 20030225

REACTIONS (2)
  - Angina pectoris [Unknown]
  - Chest pain [Recovered/Resolved]

NARRATIVE: CASE EVENT DATE: 20030225
